FAERS Safety Report 19489339 (Version 1)
Quarter: 2021Q3

REPORT INFORMATION
  Report Type: Spontaneous
  Country: DE (occurrence: DE)
  Receive Date: 20210703
  Receipt Date: 20210703
  Transmission Date: 20211014
  Serious: Yes (Hospitalization, Other)
  Sender: FDA-Public Use
  Company Number: DE-TEVA-2021-DE-1928412

PATIENT
  Age: 74 Year
  Sex: Male

DRUGS (15)
  1. EMPAGLIFLOZIN [Concomitant]
     Active Substance: EMPAGLIFLOZIN
     Dosage: 10 MILLIGRAM DAILY; 1?0?0?0
  2. EPLERENON [Concomitant]
     Active Substance: EPLERENONE
     Dosage: 50 MILLIGRAM DAILY; 1?0?0?0
  3. LACTULOSE. [Concomitant]
     Active Substance: LACTULOSE
     Dosage: 5 ML, AS NEEDED
  4. DIGITOXIN [Concomitant]
     Active Substance: DIGITOXIN
     Dosage: .05 MILLIGRAM DAILY; 1?0?0?0
  5. ENTRESTO [Concomitant]
     Active Substance: SACUBITRIL\VALSARTAN
     Dosage: 2 DOSAGE FORMS DAILY; 24|26 MG, 1?0?1?0
  6. INSULIN LISPRO [Concomitant]
     Active Substance: INSULIN LISPRO
     Dosage: ACCORDING TO PLAN
     Route: 058
  7. UNACID (AMPICILLIN SODIUM/SULBACTAM SODIUM) [Suspect]
     Active Substance: AMPICILLIN SODIUM\SULBACTAM SODIUM
     Dosage: DISCONTINUED
     Route: 065
  8. PERENTEROL FORTE 250MG [Concomitant]
     Dosage: 500 MILLIGRAM DAILY; 1?0?1?0
  9. CYANOCOBALAMIN (VITAMIN B12) [Concomitant]
     Dosage: 1 DOSAGE FORMS DAILY; 1?0?0?0
  10. METOPROLOL. [Concomitant]
     Active Substance: METOPROLOL
     Dosage: 95 MILLIGRAM DAILY; 1?0?1?0
  11. RISPERIDON [Concomitant]
     Active Substance: RISPERIDONE
     Dosage: .25 MILLIGRAM DAILY; 0?0?0?1
  12. LEVOTHYROXIN?NATRIUM [Concomitant]
     Active Substance: LEVOTHYROXINE SODIUM
     Dosage: 75 MICROGRAM DAILY; 1?0?0?0
  13. TORASEMID [Suspect]
     Active Substance: TORSEMIDE
     Dosage: 20 MILLIGRAM DAILY; 1?0?0?0
  14. INSULIN GLARGIN [Concomitant]
     Active Substance: INSULIN GLARGINE
     Dosage: 16 IU (INTERNATIONAL UNIT) DAILY; 0?0?0?1
     Route: 058
  15. APIXABAN [Concomitant]
     Active Substance: APIXABAN
     Dosage: 10 MILLIGRAM DAILY; 1?0?1?0

REACTIONS (5)
  - Acute kidney injury [Unknown]
  - General physical health deterioration [Unknown]
  - Haematochezia [Unknown]
  - Diarrhoea [Unknown]
  - Dehydration [Unknown]
